FAERS Safety Report 4990900-6 (Version None)
Quarter: 2006Q2

REPORT INFORMATION
  Report Type: 
  Country: None (occurrence: None)
  Receive Date: 20060428
  Receipt Date: 20060420
  Transmission Date: 20061013
  Serious: Yes (Death, Other)
  Sender: FDA-Public Use
  Company Number: MEDI-0004343

PATIENT
  Sex: Male

DRUGS (3)
  1. ETHYOL [Suspect]
     Indication: NEOPLASM MALIGNANT
  2. UNSPECIFIED MULTIPLE DRUGS [Concomitant]
  3. CISPLATIN [Concomitant]

REACTIONS (2)
  - APLASTIC ANAEMIA [None]
  - HEPATITIS FULMINANT [None]
